FAERS Safety Report 9799044 (Version 1)
Quarter: 2014Q1

REPORT INFORMATION
  Report Type: Spontaneous
  Country: US (occurrence: US)
  Receive Date: 20140106
  Receipt Date: 20140106
  Transmission Date: 20141002
  Serious: Yes (Hospitalization)
  Sender: FDA-Public Use
  Company Number: US-GILEAD-2010-0033324

PATIENT
  Age: 66 Year
  Sex: Female
  Weight: 77.11 kg

DRUGS (10)
  1. LETAIRIS [Suspect]
     Indication: PULMONARY ARTERIAL HYPERTENSION
     Route: 048
     Dates: start: 20080123
  2. LETAIRIS [Suspect]
     Route: 048
     Dates: start: 20071115
  3. METHYLPREDNISOLONE [Concomitant]
  4. OXYCONTIN [Concomitant]
  5. CORGARD [Concomitant]
  6. TYLENOL [Concomitant]
  7. ATIVAN [Concomitant]
  8. CEPACOL [Concomitant]
  9. VITAMIN D [Concomitant]
  10. VITAMIN B12 [Concomitant]

REACTIONS (2)
  - Haemoglobin decreased [Recovered/Resolved]
  - Anaemia [Recovered/Resolved]
